FAERS Safety Report 16411313 (Version 1)
Quarter: 2019Q2

REPORT INFORMATION
  Report Type: Spontaneous
  Country: FR (occurrence: FR)
  Receive Date: 20190610
  Receipt Date: 20190610
  Transmission Date: 20190711
  Serious: Yes (Hospitalization, Other)
  Sender: FDA-Public Use
  Company Number: FR-PFIZER INC-2019240277

PATIENT
  Age: 48 Year
  Sex: Female
  Weight: 74 kg

DRUGS (4)
  1. SALAZOPYRINE [Suspect]
     Active Substance: SULFASALAZINE
     Indication: ANKYLOSING SPONDYLITIS
     Dosage: 1 DF, 1X/DAY
     Route: 048
     Dates: start: 20150401, end: 20150424
  2. CHRONO INDOCID [Suspect]
     Active Substance: INDOMETHACIN
     Indication: ANKYLOSING SPONDYLITIS
     Dosage: 1 DF, 1X/DAY
     Route: 048
     Dates: start: 20150401, end: 20150424
  3. NUROFENFLASH [Suspect]
     Active Substance: IBUPROFEN LYSINE
     Dosage: 1 DF, AS NEEDED
     Route: 048
     Dates: end: 20150424
  4. DAFALGAN CODEINE [Suspect]
     Active Substance: ACETAMINOPHEN\CODEINE PHOSPHATE
     Dosage: UNK
     Route: 048
     Dates: end: 20150424

REACTIONS (14)
  - Macule [Recovering/Resolving]
  - Cyanosis [Recovering/Resolving]
  - Purpura [Recovering/Resolving]
  - Liver injury [Unknown]
  - Blister [Recovering/Resolving]
  - Pyrexia [Unknown]
  - Condition aggravated [Unknown]
  - Rash generalised [Recovering/Resolving]
  - Rash pustular [Recovering/Resolving]
  - Face oedema [Unknown]
  - Tachycardia [Unknown]
  - Hypotension [Unknown]
  - Dermatitis exfoliative generalised [Recovering/Resolving]
  - Drug reaction with eosinophilia and systemic symptoms [Recovered/Resolved]

NARRATIVE: CASE EVENT DATE: 20150413
